FAERS Safety Report 10213866 (Version 2)
Quarter: 2014Q2

REPORT INFORMATION
  Report Type: Spontaneous
  Country: IL (occurrence: IL)
  Receive Date: 20140603
  Receipt Date: 20140603
  Transmission Date: 20141212
  Serious: Yes (Hospitalization)
  Sender: FDA-Public Use
  Company Number: IL-SA-2014SA066867

PATIENT
  Age: 64 Year
  Sex: Male

DRUGS (11)
  1. STILNOX [Suspect]
     Indication: SUICIDE ATTEMPT
     Dosage: TOOK 40 PILLS OF 5 MG EACH
     Route: 048
  2. DEPALEPT [Concomitant]
  3. DEPALEPT [Concomitant]
  4. VENLAFAXINE [Concomitant]
  5. PREDNISON [Concomitant]
  6. PLAQUENIL [Concomitant]
  7. MIRTAZAPINE [Concomitant]
  8. THIORIDAZINE [Concomitant]
  9. NORMITEN [Concomitant]
  10. ASPIRIN [Concomitant]
  11. WARFARIN [Concomitant]

REACTIONS (9)
  - Suicide attempt [Unknown]
  - Coma [Recovered/Resolved]
  - Overdose [Unknown]
  - Stupor [Recovered/Resolved]
  - Loss of consciousness [Recovered/Resolved]
  - Coma scale abnormal [Recovered/Resolved]
  - Hypotonia [Recovered/Resolved]
  - Extensor plantar response [Recovered/Resolved]
  - Pneumonia aspiration [Unknown]
